FAERS Safety Report 5061436-1 (Version None)
Quarter: 2006Q3

REPORT INFORMATION
  Report Type: 
  Country: None (occurrence: None)
  Receive Date: 20060719
  Receipt Date: 20060719
  Transmission Date: 20061208
  Serious: Yes (Hospitalization)
  Sender: FDA-Public Use
  Company Number: None

PATIENT
  Age: 84 Year
  Sex: Male

DRUGS (7)
  1. NAPROXEN [Suspect]
     Indication: PAIN
     Dosage: OTC
  2. CITALOPRAM HYDROBROMIDE [Concomitant]
  3. POTASSIUM CHLORIDE [Concomitant]
  4. NPH INSULIN [Concomitant]
  5. DOXAZOSIN [Concomitant]
  6. LISINOPRIL [Concomitant]
  7. FUROSEMIDE [Concomitant]

REACTIONS (1)
  - GASTRITIS [None]
